FAERS Safety Report 8780352 (Version 1)
Quarter: 2012Q4

REPORT INFORMATION
  Report Type: Spontaneous
  Country: IT (occurrence: None)
  Receive Date: 20120828
  Receipt Date: 20120828
  Transmission Date: 20130627
  Serious: Yes (Hospitalization)
  Sender: FDA-Public Use
  Company Number: 2012AP002661

PATIENT
  Age: 40 Year
  Sex: Female

DRUGS (8)
  1. OLANZAPINE [Suspect]
     Route: 048
  2. ARIPIPRAZOLE [Suspect]
  3. CHLORPROMAZINE HYDROCHLORIDE [Suspect]
  4. PROMAZINE [Suspect]
     Route: 030
  5. HALOPERIDOL (HALOPERIDOL) [Concomitant]
  6. BUPROPION (BUPROPI0N) [Concomitant]
  7. CLOMIPRAMINE ( CLOMIPRAMINE ) [Concomitant]
  8. DIAZEPAM (DIAZEPAM) [Concomitant]

REACTIONS (2)
  - Neuroleptic malignant syndrome [None]
  - Catatonia [None]
